FAERS Safety Report 25024647 (Version 1)
Quarter: 2025Q1

REPORT INFORMATION
  Report Type: Spontaneous
  Country: US (occurrence: None)
  Receive Date: 20250228
  Receipt Date: 20250228
  Transmission Date: 20250409
  Serious: Yes (Death)
  Sender: FDA-CTU
  Company Number: None

PATIENT
  Age: 42 Year
  Sex: Female

DRUGS (1)
  1. CEFTRIAXONE [Suspect]
     Active Substance: CEFTRIAXONE
     Indication: Antibiotic prophylaxis
     Dates: start: 20241115

REACTIONS (6)
  - Restlessness [None]
  - Dyspnoea [None]
  - Feeling hot [None]
  - Erythema [None]
  - Hyperhidrosis [None]
  - Cardio-respiratory arrest [None]

NARRATIVE: CASE EVENT DATE: 20241115
